FAERS Safety Report 19123747 (Version 3)
Quarter: 2021Q4

REPORT INFORMATION
  Report Type: Report from Study
  Country: US (occurrence: US)
  Receive Date: 20210412
  Receipt Date: 20211230
  Transmission Date: 20220303
  Serious: Yes (Death, Hospitalization, Other)
  Sender: FDA-Public Use
  Company Number: US-BEIGENE-BGN-2021-000787

PATIENT

DRUGS (3)
  1. BRUKINSA [Suspect]
     Active Substance: ZANUBRUTINIB
     Indication: Mantle cell lymphoma
     Dosage: 160 MILLIGRAM, BID
     Route: 048
     Dates: start: 20210308, end: 20210308
  2. BRUKINSA [Suspect]
     Active Substance: ZANUBRUTINIB
     Dosage: 160 MILLIGRAM, BID
     Route: 048
     Dates: start: 20210320
  3. BRUKINSA [Suspect]
     Active Substance: ZANUBRUTINIB
     Dosage: 80 MILLIGRAM, QD
     Dates: start: 20210427

REACTIONS (7)
  - Death [Fatal]
  - Rectal haemorrhage [Recovered/Resolved]
  - Medical procedure [Unknown]
  - Impaired healing [Recovered/Resolved]
  - Catheter site haemorrhage [Recovered/Resolved]
  - Epistaxis [Unknown]
  - Underdose [Unknown]

NARRATIVE: CASE EVENT DATE: 20210309
